FAERS Safety Report 23419850 (Version 3)
Quarter: 2024Q1

REPORT INFORMATION
  Report Type: Spontaneous
  Country: US (occurrence: US)
  Receive Date: 20240119
  Receipt Date: 20240129
  Transmission Date: 20240409
  Serious: No
  Sender: FDA-Public Use
  Company Number: US-OPELLA-2024OHG001487

PATIENT
  Sex: Female

DRUGS (2)
  1. ICY HOT MEDICATED [Suspect]
     Active Substance: MENTHOL
     Indication: Product used for unknown indication
     Dates: start: 20240114
  2. ICY HOT MEDICATED [Suspect]
     Active Substance: MENTHOL
     Dates: start: 20240115

REACTIONS (2)
  - Application site burn [Unknown]
  - Application site vesicles [Unknown]
